FAERS Safety Report 11116355 (Version 1)
Quarter: 2015Q2

REPORT INFORMATION
  Report Type: Spontaneous
  Country: US (occurrence: US)
  Receive Date: 20150515
  Receipt Date: 20150515
  Transmission Date: 20150821
  Serious: No
  Sender: FDA-Public Use
  Company Number: US-BAYER-2015-196928

PATIENT
  Sex: Female

DRUGS (2)
  1. ADALAT CC [Suspect]
     Active Substance: NIFEDIPINE
     Indication: COUGH
     Dosage: UNK
     Dates: start: 1995, end: 1997
  2. ADALAT CC [Suspect]
     Active Substance: NIFEDIPINE
     Indication: DYSPNOEA

REACTIONS (1)
  - Dyspnoea [None]
